FAERS Safety Report 20642147 (Version 1)
Quarter: 2022Q1

REPORT INFORMATION
  Report Type: Spontaneous
  Country: LV (occurrence: LV)
  Receive Date: 20220328
  Receipt Date: 20220328
  Transmission Date: 20220423
  Serious: Yes (Death, Life-Threatening, Hospitalization, Other)
  Sender: FDA-Public Use
  Company Number: LV-AVENTIS-200817328GDDC

PATIENT
  Age: 55 Year
  Sex: Female
  Weight: 84 kg

DRUGS (6)
  1. TAXOTERE [Suspect]
     Active Substance: DOCETAXEL
     Indication: Breast cancer
     Dosage: 120 MG,UNK
     Route: 042
     Dates: start: 20080711, end: 20080711
  2. TAXOTERE [Suspect]
     Active Substance: DOCETAXEL
     Dosage: UNK
  3. TRAMADOL HYDROCHLORIDE [Suspect]
     Active Substance: TRAMADOL HYDROCHLORIDE
     Indication: Perineal pain
     Dosage: UNK
     Dates: start: 20191126
  4. TRAMADOL HYDROCHLORIDE [Suspect]
     Active Substance: TRAMADOL HYDROCHLORIDE
     Indication: Back pain
  5. DIAZEPAM [Suspect]
     Active Substance: DIAZEPAM
     Indication: Perineal pain
     Dates: start: 20191126
  6. DIAZEPAM [Suspect]
     Active Substance: DIAZEPAM
     Indication: Back pain

REACTIONS (10)
  - Anaphylactic reaction [Recovered/Resolved]
  - Dyspnoea [Recovered/Resolved]
  - Flushing [Recovered/Resolved]
  - Nausea [Recovered/Resolved]
  - Headache [Recovered/Resolved]
  - Dysphagia [Recovered/Resolved]
  - Psychotic disorder [Fatal]
  - Hydrophobia [Unknown]
  - Panic attack [Fatal]
  - Claustrophobia [Unknown]

NARRATIVE: CASE EVENT DATE: 20080728
